FAERS Safety Report 21909589 (Version 1)
Quarter: 2023Q1

REPORT INFORMATION
  Report Type: Spontaneous
  Country: US (occurrence: US)
  Receive Date: 20230125
  Receipt Date: 20230125
  Transmission Date: 20230417
  Serious: Yes (Other)
  Sender: FDA-Public Use
  Company Number: US-BEH-2023154316

PATIENT
  Age: 9 Month
  Sex: Male

DRUGS (3)
  1. HUMAN IMMUNOGLOBULIN G [Suspect]
     Active Substance: HUMAN IMMUNOGLOBULIN G
     Indication: Opsoclonus myoclonus
     Route: 042
  2. DEXAMETHASONE [Concomitant]
     Active Substance: DEXAMETHASONE
     Indication: Opsoclonus myoclonus
     Route: 065
  3. DIGOXIN [Suspect]
     Active Substance: DIGOXIN

REACTIONS (4)
  - Heart rate increased [Recovered/Resolved]
  - Opsoclonus myoclonus [Unknown]
  - No adverse event [Unknown]
  - Off label use [Unknown]
